FAERS Safety Report 12728324 (Version 2)
Quarter: 2020Q3

REPORT INFORMATION
  Report Type: Report from Study
  Country: US (occurrence: US)
  Receive Date: 20160909
  Receipt Date: 20200818
  Transmission Date: 20201102
  Serious: No
  Sender: FDA-Public Use
  Company Number: US-SA-2016SA162179

PATIENT
  Age: 49 Year
  Sex: Male

DRUGS (2)
  1. INSULIN GLARGINE [Suspect]
     Active Substance: INSULIN GLARGINE
     Indication: TYPE 2 DIABETES MELLITUS
     Dosage: HE TAKES IT 4 TIMES A MONTH AT THE MOST
     Route: 065
  2. INSULIN GLARGINE [Suspect]
     Active Substance: INSULIN GLARGINE
     Dosage: 20 IU, QD
     Route: 058

REACTIONS (3)
  - Hypertension [Not Recovered/Not Resolved]
  - Intentional product misuse [Unknown]
  - Gastric bypass [Unknown]

NARRATIVE: CASE EVENT DATE: 201606
